FAERS Safety Report 7724079-4 (Version None)
Quarter: 2011Q3

REPORT INFORMATION
  Report Type: 
  Country: None (occurrence: None)
  Receive Date: 20110901
  Receipt Date: 20110824
  Transmission Date: 20111222
  Serious: Yes (Hospitalization)
  Sender: FDA-Public Use
  Company Number: GB-TEVA-298772ISR

PATIENT
  Age: 92 Year
  Sex: Female

DRUGS (1)
  1. CODEINE [Suspect]
     Indication: PAIN
     Dosage: 60 MILLIGRAM;
     Route: 048

REACTIONS (1)
  - FAECALOMA [None]
